FAERS Safety Report 18472965 (Version 1)
Quarter: 2020Q4

REPORT INFORMATION
  Report Type: Spontaneous
  Country: JP (occurrence: JP)
  Receive Date: 20201106
  Receipt Date: 20201106
  Transmission Date: 20210114
  Serious: Yes (Other)
  Sender: FDA-Public Use
  Company Number: NVSJ2020JP011402

PATIENT
  Sex: Female

DRUGS (2)
  1. SYMMETREL [Suspect]
     Active Substance: AMANTADINE HYDROCHLORIDE
     Indication: ALTERED STATE OF CONSCIOUSNESS
     Dosage: 50 MG, BID
     Route: 048
  2. SYMMETREL [Suspect]
     Active Substance: AMANTADINE HYDROCHLORIDE
     Indication: INJURY
     Dosage: 50 MG, QD
     Route: 048

REACTIONS (2)
  - Depressed level of consciousness [Unknown]
  - Dysphagia [Unknown]
